FAERS Safety Report 22334419 (Version 2)
Quarter: 2023Q2

REPORT INFORMATION
  Report Type: Report from Study
  Country: CZ (occurrence: CZ)
  Receive Date: 20230517
  Receipt Date: 20230519
  Transmission Date: 20230722
  Serious: Yes (Other)
  Sender: FDA-Public Use
  Company Number: CZ-ABBVIE-22K-217-4515907-00

PATIENT
  Age: 38 Year
  Sex: Female
  Weight: 80 kg

DRUGS (6)
  1. HUMIRA [Suspect]
     Active Substance: ADALIMUMAB
     Indication: Psoriasis
     Dosage: TIME INTERVAL: 1 TOTAL: WEEK 0
     Route: 058
     Dates: start: 20180302, end: 20180302
  2. HUMIRA [Suspect]
     Active Substance: ADALIMUMAB
     Dosage: WEEK 0
     Route: 058
     Dates: start: 20230412, end: 20230412
  3. HUMIRA [Suspect]
     Active Substance: ADALIMUMAB
     Dosage: TIME INTERVAL: 1 TOTAL: WEEK 1
     Route: 058
     Dates: start: 201803, end: 201803
  4. HUMIRA [Suspect]
     Active Substance: ADALIMUMAB
     Route: 058
     Dates: start: 201803, end: 20211214
  5. HUMIRA [Suspect]
     Active Substance: ADALIMUMAB
     Dosage: WEEK 1
     Route: 058
     Dates: start: 202304, end: 202304
  6. HUMIRA [Suspect]
     Active Substance: ADALIMUMAB
     Route: 058
     Dates: start: 202304

REACTIONS (4)
  - Venous thrombosis [Unknown]
  - COVID-19 [Unknown]
  - Maternal exposure during pregnancy [Unknown]
  - Normal newborn [Unknown]

NARRATIVE: CASE EVENT DATE: 20220901
